FAERS Safety Report 11153241 (Version 1)
Quarter: 2015Q2

REPORT INFORMATION
  Report Type: Spontaneous
  Country: PL (occurrence: PL)
  Receive Date: 20150601
  Receipt Date: 20150601
  Transmission Date: 20150821
  Serious: Yes (Other)
  Sender: FDA-Public Use
  Company Number: PL-TEVA-566524ISR

PATIENT
  Age: 74 Year
  Sex: Male
  Weight: 62 kg

DRUGS (3)
  1. OXALIPLATYNA [Suspect]
     Active Substance: OXALIPLATIN
     Indication: COLON CANCER
     Dosage: DOSE UNSPECIFIED
     Route: 042
     Dates: start: 20130909, end: 20131104
  2. LEUKOWORYNA [Suspect]
     Active Substance: LEUCOVORIN
     Indication: COLON CANCER
     Dosage: DOSE UNSPECIFIED
     Route: 042
     Dates: start: 20130909, end: 20131104
  3. 5 FU [Suspect]
     Active Substance: FLUOROURACIL
     Indication: COLON CANCER
     Dosage: DOSE UNSPECIFIED
     Route: 042
     Dates: start: 20130909, end: 20131104

REACTIONS (1)
  - Neutropenia [Unknown]

NARRATIVE: CASE EVENT DATE: 20131118
